FAERS Safety Report 8138298-9 (Version None)
Quarter: 2012Q1

REPORT INFORMATION
  Report Type: 
  Country: None (occurrence: None)
  Receive Date: 20120215
  Receipt Date: 20111104
  Transmission Date: 20120608
  Serious: Yes (Hospitalization)
  Sender: FDA-Public Use
  Company Number: CA-JNJFOC-20120107787

PATIENT
  Sex: Male
  Weight: 102.7 kg

DRUGS (5)
  1. IMURAN [Concomitant]
     Route: 065
  2. URSO FALK [Concomitant]
     Route: 065
  3. REMICADE [Suspect]
     Indication: COLITIS ULCERATIVE
     Route: 042
  4. REMICADE [Suspect]
     Dosage: LAST INFUSION.
     Route: 042
     Dates: start: 20110909
  5. ASACOL [Concomitant]
     Route: 065

REACTIONS (1)
  - HOSPITALISATION [None]
